FAERS Safety Report 7084558-2 (Version None)
Quarter: 2010Q4

REPORT INFORMATION
  Report Type: 
  Country: None (occurrence: None)
  Receive Date: 20101104
  Receipt Date: 20101028
  Transmission Date: 20110411
  Serious: Yes (Hospitalization)
  Sender: FDA-Public Use
  Company Number: US-WYE-H18495710

PATIENT
  Age: 78 Year
  Sex: Male
  Weight: 81 kg

DRUGS (12)
  1. TEMSIROLIMUS [Suspect]
     Indication: SARCOMA METASTATIC
     Route: 042
     Dates: start: 20100527, end: 20100617
  2. SIMVASTATIN [Concomitant]
  3. TERAZOSIN HCL [Concomitant]
  4. FINASTERIDE [Concomitant]
  5. OSCAL [Concomitant]
  6. LYRICA [Concomitant]
  7. METFORMIN [Concomitant]
  8. MULTI-VITAMINS [Concomitant]
  9. FISH OIL [Concomitant]
  10. PYRIDOXINE HYDROCHLORIDE [Concomitant]
  11. METOPROLOL [Concomitant]
  12. PANTOPRAZOLE [Concomitant]

REACTIONS (1)
  - DYSPHAGIA [None]
